FAERS Safety Report 10251914 (Version 2)
Quarter: 2014Q2

REPORT INFORMATION
  Report Type: Spontaneous
  Country: GB (occurrence: GB)
  Receive Date: 20140623
  Receipt Date: 20140627
  Transmission Date: 20141212
  Serious: Yes (Other)
  Sender: FDA-Public Use
  Company Number: GB-ACCORD-024286

PATIENT
  Age: 86 Year
  Sex: Female

DRUGS (5)
  1. LISINOPRIL [Suspect]
     Indication: RENAL FAILURE
     Dosage: 1 TABLET OF 2.5 MG
     Route: 048
     Dates: start: 20140429
  2. MIRCERA [Concomitant]
  3. OMEPRAZOLE [Concomitant]
  4. PARACETAMOL [Concomitant]
  5. ZOPICLONE [Concomitant]

REACTIONS (4)
  - Discomfort [Unknown]
  - Off label use [Unknown]
  - Pruritus [Recovered/Resolved]
  - Blood pressure increased [Unknown]
